FAERS Safety Report 9479609 (Version 8)
Quarter: 2014Q2

REPORT INFORMATION
  Report Type: Spontaneous
  Country: US (occurrence: US)
  Receive Date: 20130827
  Receipt Date: 20140408
  Transmission Date: 20141212
  Serious: Yes (Hospitalization, Other)
  Sender: FDA-Public Use
  Company Number: PHEH2013US017881

PATIENT
  Age: 46 Year
  Sex: Female

DRUGS (15)
  1. TEGRETOL-XR [Suspect]
     Indication: CONVULSION
     Dosage: 2600 MG, DAILY (400 MG 3  IN THE MORNING AND 3 AT NIGHT, AND 1 DF OF 200 MG DAILY)
     Route: 048
  2. TEGRETOL [Suspect]
     Indication: CONVULSION
     Dosage: UNK UKN, UNK
  3. VALACYCLOVIR [Suspect]
     Indication: HERPES VIRUS INFECTION
     Dosage: 2 DF, BID
  4. KEPPRA [Concomitant]
     Indication: CONVULSION
     Dosage: 6.5 DF, DAILY
     Route: 048
  5. PHENOBARBITAL [Concomitant]
     Indication: CONVULSION
     Dosage: 97.2 MG, BID
  6. FISH OIL W/VITAMINS NOS [Concomitant]
     Dosage: UNK UKN, UNK
  7. CENTRUM [Concomitant]
     Dosage: UNK UKN, UNK
  8. MOTRIN [Concomitant]
     Dosage: 800 MG,  AS NEEDED
  9. ACYCLOVIR [Concomitant]
     Dosage: 400 MG, TID
     Route: 048
  10. MULTIVIT//VITAMINS NOS [Concomitant]
     Dosage: UNK UKN, UNK
  11. ZOVIRAX [Concomitant]
     Indication: HERPES VIRUS INFECTION
     Dosage: UNK UKN, UNK
  12. PREDNISONE [Concomitant]
     Dosage: UNK UKN, UNK
  13. TYLENOL W/CODEINE [Concomitant]
     Dosage: UNK UKN, UNK
  14. CALCIUM [Concomitant]
     Dosage: UNK UKN, UNK
  15. FISH OIL [Concomitant]
     Dosage: UNK UKN, UNK

REACTIONS (35)
  - Generalised tonic-clonic seizure [Not Recovered/Not Resolved]
  - Arthropathy [Unknown]
  - Back pain [Unknown]
  - Chest pain [Unknown]
  - Pain [Unknown]
  - Ocular hyperaemia [Unknown]
  - Wrong drug administered [Unknown]
  - Renal pain [Unknown]
  - Hepatic pain [Unknown]
  - Bladder pain [Unknown]
  - Irritability [Unknown]
  - Eye disorder [Unknown]
  - Insomnia [Unknown]
  - Asthenia [Unknown]
  - Decreased appetite [Unknown]
  - Arthralgia [Unknown]
  - Abdominal pain [Unknown]
  - Nausea [Unknown]
  - Dizziness [Unknown]
  - Blood pressure fluctuation [Unknown]
  - Headache [Unknown]
  - Myalgia [Unknown]
  - Fatigue [Unknown]
  - Herpes virus infection [Unknown]
  - Muscle spasms [Unknown]
  - Suicidal ideation [Unknown]
  - Blood sodium decreased [Recovered/Resolved]
  - Sarcoidosis [Unknown]
  - Angina pectoris [Unknown]
  - Glaucoma [Unknown]
  - Intraocular pressure increased [Recovered/Resolved]
  - Eye swelling [Unknown]
  - Photophobia [Unknown]
  - Visual impairment [Unknown]
  - Convulsion [Recovered/Resolved]
